FAERS Safety Report 13940372 (Version 1)
Quarter: 2017Q3

REPORT INFORMATION
  Report Type: Spontaneous
  Country: JP (occurrence: JP)
  Receive Date: 20170906
  Receipt Date: 20170906
  Transmission Date: 20171127
  Serious: Yes (Death)
  Sender: FDA-Public Use
  Company Number: JP-ROCHE-1989730

PATIENT
  Age: 83 Year
  Sex: Female

DRUGS (5)
  1. ACTIVACIN [Suspect]
     Active Substance: ALTEPLASE
     Indication: MYOCARDIAL INFARCTION
     Dosage: DOSE: 12 MIU
     Route: 042
     Dates: start: 19971020, end: 19971020
  2. XYLOCAINE [Concomitant]
     Active Substance: LIDOCAINE HYDROCHLORIDE
     Route: 042
     Dates: start: 19971020, end: 19971020
  3. GASTER [Concomitant]
     Active Substance: FAMOTIDINE
     Route: 042
     Dates: start: 19971020, end: 19971020
  4. BUFFERIN (ASPIRIN) [Concomitant]
     Route: 048
     Dates: start: 19971020, end: 19971020
  5. SIGMART [Concomitant]
     Active Substance: NICORANDIL
     Route: 042
     Dates: start: 19971020, end: 19971020

REACTIONS (1)
  - Cerebral haemorrhage [Fatal]

NARRATIVE: CASE EVENT DATE: 19971020
